FAERS Safety Report 24062397 (Version 1)
Quarter: 2024Q3

REPORT INFORMATION
  Report Type: Other
  Country: CN (occurrence: CN)
  Receive Date: 20240708
  Receipt Date: 20240708
  Transmission Date: 20241016
  Serious: Yes (Other)
  Sender: GE HEALTHCARE
  Company Number: CN-GE HEALTHCARE-2024CSU007365

PATIENT
  Age: 65 Year
  Sex: Male
  Weight: 65 kg

DRUGS (4)
  1. OMNIPAQUE [Suspect]
     Active Substance: IOHEXOL
     Indication: Computerised tomogram thorax
     Dosage: 35 GM, TOTAL
     Route: 041
     Dates: start: 20240616, end: 20240616
  2. OMNIPAQUE [Suspect]
     Active Substance: IOHEXOL
     Indication: Thromboembolectomy
  3. OMNIPAQUE [Suspect]
     Active Substance: IOHEXOL
     Indication: Cavagram
  4. OMNIPAQUE [Suspect]
     Active Substance: IOHEXOL
     Indication: Vena cava filter insertion

REACTIONS (1)
  - Hepatic function abnormal [Recovering/Resolving]

NARRATIVE: CASE EVENT DATE: 20240617
